FAERS Safety Report 10260913 (Version 1)
Quarter: 2014Q2

REPORT INFORMATION
  Report Type: Spontaneous
  Country: GB (occurrence: None)
  Receive Date: 20140623
  Receipt Date: 20140623
  Transmission Date: 20141212
  Serious: Yes (Hospitalization)
  Sender: FDA-Public Use
  Company Number: AUR-APL-2014-06502

PATIENT
  Age: 14 Year
  Sex: Male

DRUGS (2)
  1. MODAFINIL [Suspect]
     Indication: HYPERSOMNIA-BULIMIA SYNDROME
  2. MODAFINIL [Suspect]

REACTIONS (2)
  - Gastrointestinal disorder [None]
  - Drug intolerance [None]
